FAERS Safety Report 9931573 (Version 1)
Quarter: 2014Q1

REPORT INFORMATION
  Report Type: Spontaneous
  Country: US (occurrence: US)
  Receive Date: 20140228
  Receipt Date: 20140228
  Transmission Date: 20141002
  Serious: Yes (Hospitalization, Other)
  Sender: FDA-Public Use
  Company Number: US-TEVA-465186USA

PATIENT
  Age: 60 Year
  Sex: Female
  Weight: 38.14 kg

DRUGS (4)
  1. ACTIQ [Suspect]
     Indication: PAIN
     Dates: start: 1998
  2. XANAX [Concomitant]
     Indication: ANXIETY
  3. XANAX [Concomitant]
     Indication: MUSCLE RELAXANT THERAPY
  4. XANAX [Concomitant]
     Indication: INSOMNIA

REACTIONS (19)
  - Suicidal ideation [Unknown]
  - Hip arthroplasty [Unknown]
  - Hospitalisation [Unknown]
  - Abasia [Unknown]
  - Constipation [Unknown]
  - Fall [Unknown]
  - Fibrosis [Unknown]
  - Limb asymmetry [Unknown]
  - Hospice care [Recovered/Resolved]
  - Inappropriate schedule of drug administration [Unknown]
  - Fatigue [Unknown]
  - Confusional state [Unknown]
  - Insomnia [Unknown]
  - Somnolence [Unknown]
  - Oedema [Unknown]
  - Head injury [Unknown]
  - Asthenia [Unknown]
  - Activities of daily living impaired [Unknown]
  - Adverse event [Unknown]
